FAERS Safety Report 17924064 (Version 1)
Quarter: 2020Q2

REPORT INFORMATION
  Report Type: Spontaneous
  Country: FR (occurrence: FR)
  Receive Date: 20200622
  Receipt Date: 20200622
  Transmission Date: 20200714
  Serious: Yes (Life-Threatening)
  Sender: FDA-Public Use
  Company Number: NVSC2020FR172879

PATIENT
  Age: 38 Year
  Sex: Male

DRUGS (1)
  1. AMOXICILLINE [Suspect]
     Active Substance: AMOXICILLIN
     Indication: INFLUENZA LIKE ILLNESS
     Dosage: UNK
     Route: 048
     Dates: start: 20200309, end: 20200315

REACTIONS (6)
  - Coronavirus test positive [Not Recovered/Not Resolved]
  - Thrombocytopenia [Recovered/Resolved]
  - Coronavirus infection [Recovered/Resolved]
  - Influenza [Recovered/Resolved]
  - Lung disorder [Recovered/Resolved]
  - Condition aggravated [Recovered/Resolved]

NARRATIVE: CASE EVENT DATE: 202003
